FAERS Safety Report 5899545-7 (Version None)
Quarter: 2008Q3

REPORT INFORMATION
  Report Type: 
  Country: None (occurrence: None)
  Receive Date: 20080925
  Receipt Date: 20080925
  Transmission Date: 20090109
  Serious: Yes (Hospitalization)
  Sender: FDA-Public Use
  Company Number: None

PATIENT
  Age: 66 Year
  Sex: Male

DRUGS (2)
  1. NAPROXEN [Suspect]
     Indication: AORTIC VALVE REPLACEMENT
     Dosage: 750 MG ONCE PO
     Route: 048
     Dates: start: 20080602, end: 20080603
  2. WARFARIN SODIUM [Suspect]
     Dosage: EVERYDAY PO
     Route: 048

REACTIONS (1)
  - GASTRIC HAEMORRHAGE [None]
